FAERS Safety Report 21965796 (Version 2)
Quarter: 2023Q2

REPORT INFORMATION
  Report Type: Other
  Country: FR (occurrence: FR)
  Receive Date: 20230208
  Receipt Date: 20230412
  Transmission Date: 20230721
  Serious: Yes (Other)
  Sender: FDA-Public Use
  Company Number: FR-002147023-NVSC2023FR020674

PATIENT
  Age: 63 Year
  Sex: Male

DRUGS (1)
  1. LUCENTIS [Suspect]
     Active Substance: RANIBIZUMAB
     Indication: Retinal neovascularisation
     Dosage: 3 DOSAGE FORM, Q3MO
     Route: 050

REACTIONS (3)
  - Retinal neovascularisation [Unknown]
  - Condition aggravated [Unknown]
  - Therapy non-responder [Unknown]
